FAERS Safety Report 8010864-0 (Version None)
Quarter: 2011Q4

REPORT INFORMATION
  Report Type: 
  Country: None (occurrence: None)
  Receive Date: 20111222
  Receipt Date: 20111213
  Transmission Date: 20120403
  Serious: Yes (Hospitalization)
  Sender: FDA-Public Use
  Company Number: AUR-APL-2011-01235

PATIENT
  Age: 61 Year
  Sex: Female

DRUGS (6)
  1. PHENOBARBITAL TAB [Concomitant]
  2. AMLODIPINE [Suspect]
     Indication: HYPERTENSION
     Dosage: (5 MG,1 D),ORAL
     Route: 048
     Dates: start: 20100801, end: 20101201
  3. AMLODIPINE BESYLATE AND OLMESARTAN MEDOXOMIL [Suspect]
     Indication: HYPERTENSION
     Dosage: 40/10 MG (1 IN 1 D),ORAL
     Route: 048
     Dates: start: 20100801, end: 20101201
  4. RAMIPRIL [Suspect]
     Indication: HYPERTENSION
     Dosage: (10 MG,1 D),ORAL
     Route: 048
     Dates: start: 20100801
  5. MANIDIPINE (MANIDIPINE) [Suspect]
     Indication: HYPERTENSION
     Dosage: (10 MG,1 D),ORAL
     Route: 048
     Dates: start: 20100801, end: 20101201
  6. PHENYTOIN [Concomitant]

REACTIONS (6)
  - DRUG INEFFECTIVE [None]
  - HYPERAEMIA [None]
  - OEDEMA PERIPHERAL [None]
  - BLOOD PRESSURE SYSTOLIC INCREASED [None]
  - PERIPHERAL NERVE OPERATION [None]
  - PAIN IN EXTREMITY [None]
